FAERS Safety Report 20080507 (Version 1)
Quarter: 2021Q4

REPORT INFORMATION
  Report Type: Spontaneous
  Country: GB (occurrence: GB)
  Receive Date: 20211117
  Receipt Date: 20211117
  Transmission Date: 20220304
  Serious: Yes (Hospitalization)
  Sender: FDA-Public Use
  Company Number: None

PATIENT
  Age: 42 Year
  Sex: Male

DRUGS (12)
  1. OLANZAPINE [Suspect]
     Active Substance: OLANZAPINE
     Indication: Ill-defined disorder
     Dosage: 10 MG, DAILY
     Route: 048
  2. HALOPERIDOL [Suspect]
     Active Substance: HALOPERIDOL
     Indication: Ill-defined disorder
     Dosage: 5 MG, TID
     Route: 048
  3. PROCYCLIDINE [Suspect]
     Active Substance: PROCYCLIDINE
     Indication: Ill-defined disorder
     Dosage: 5 MG, TID
     Route: 048
  4. PROMETHAZINE [Suspect]
     Active Substance: PROMETHAZINE HYDROCHLORIDE
     Indication: Ill-defined disorder
     Dosage: 5 MG, TID
     Route: 048
  5. TRAZODONE [Suspect]
     Active Substance: TRAZODONE HYDROCHLORIDE
     Indication: Ill-defined disorder
     Dosage: 100 MG, EACH EVENING
     Route: 048
  6. ZUCLOPENTHIXOL [Suspect]
     Active Substance: ZUCLOPENTHIXOL
     Indication: Ill-defined disorder
     Dosage: 100 MG, UNKNOWN
     Route: 030
  7. CO-AMOXICLAV [AMOXICILLIN;CLAVULANATE POTASSI [Concomitant]
     Indication: Ill-defined disorder
     Dosage: UNK, UNKNOWN
     Route: 065
  8. ENOXAPARIN [Concomitant]
     Active Substance: ENOXAPARIN
     Indication: Ill-defined disorder
     Dosage: UNK, UNKNOWN
     Route: 065
  9. LORAZEPAM [Concomitant]
     Active Substance: LORAZEPAM
     Indication: Ill-defined disorder
     Dosage: UNK, UNKNOWN
     Route: 065
  10. METHADONE [Concomitant]
     Active Substance: METHADONE HYDROCHLORIDE
     Indication: Ill-defined disorder
     Dosage: UNK, UNKNOWN
     Route: 065
  11. NITROFURANTOIN [Concomitant]
     Active Substance: NITROFURANTOIN
     Indication: Ill-defined disorder
     Dosage: UNK, UNKNOWN
     Route: 065
  12. NITRAZEPAM [Concomitant]
     Active Substance: NITRAZEPAM
     Indication: Ill-defined disorder
     Dosage: UNK, UNKNOWN
     Route: 065

REACTIONS (6)
  - Liver function test abnormal [Unknown]
  - Fibrin D dimer increased [Unknown]
  - Tachycardia [Unknown]
  - Dystonia [Unknown]
  - Neuroleptic malignant syndrome [Unknown]
  - Somnolence [Unknown]
